FAERS Safety Report 7753257-3 (Version None)
Quarter: 2011Q3

REPORT INFORMATION
  Report Type: 
  Country: None (occurrence: None)
  Receive Date: 20110915
  Receipt Date: 20110701
  Transmission Date: 20111222
  Serious: No
  Sender: FDA-Public Use
  Company Number: US-GLAXOSMITHKLINE-A0934621A

PATIENT
  Age: 18 Year
  Sex: Female

DRUGS (1)
  1. NICORETTE (MINT) [Suspect]
     Indication: EX-TOBACCO USER
     Dates: start: 20110630, end: 20110630

REACTIONS (3)
  - THROAT IRRITATION [None]
  - ILL-DEFINED DISORDER [None]
  - OROPHARYNGEAL DISCOMFORT [None]
